FAERS Safety Report 18171258 (Version 5)
Quarter: 2020Q4

REPORT INFORMATION
  Report Type: Spontaneous
  Country: US (occurrence: US)
  Receive Date: 20200819
  Receipt Date: 20201210
  Transmission Date: 20210113
  Serious: Yes (Other)
  Sender: FDA-Public Use
  Company Number: US-SA-2020SA214307

PATIENT

DRUGS (2)
  1. LANTUS [Suspect]
     Active Substance: INSULIN GLARGINE
     Indication: TYPE 2 DIABETES MELLITUS
     Dosage: 15 IU, QD
     Route: 065
     Dates: start: 1990
  2. LANTUS [Suspect]
     Active Substance: INSULIN GLARGINE
     Dosage: 16 IU, QD.DEPENDING ON HIS SUGARS
     Route: 065

REACTIONS (9)
  - Drug ineffective [Unknown]
  - Diabetes mellitus inadequate control [Unknown]
  - Cough [Unknown]
  - Malaise [Unknown]
  - Liquid product physical issue [Unknown]
  - Suspected COVID-19 [Unknown]
  - Confusional state [Unknown]
  - Product colour issue [Unknown]
  - Blood glucose increased [Unknown]
